FAERS Safety Report 17635288 (Version 1)
Quarter: 2020Q2

REPORT INFORMATION
  Report Type: Spontaneous
  Country: US (occurrence: US)
  Receive Date: 20200407
  Receipt Date: 20200407
  Transmission Date: 20200713
  Serious: Yes (Hospitalization, Other)
  Sender: FDA-Public Use
  Company Number: US-EMCURE PHARMACEUTICALS LTD-2020-EPL-000361

PATIENT
  Age: 68 Year
  Sex: Female
  Weight: 84 kg

DRUGS (26)
  1. FOSAMAX [Concomitant]
     Active Substance: ALENDRONATE SODIUM
  2. CALCIUM [Concomitant]
     Active Substance: CALCIUM
  3. MULTI-VITAMIN [Concomitant]
     Active Substance: .ALPHA.-TOCOPHEROL ACETATE, DL-\ASCORBIC ACID\CYANOCOBALAMIN\FLUORIDE ION\FOLIC ACID\NIACIN\PYRIDOXINE\RIBOFLAVIN\THIAMINE\VITAMIN A\VITAMIN D
  4. WELLBUTRIN [Interacting]
     Active Substance: BUPROPION HYDROCHLORIDE
     Indication: PRODUCT USED FOR UNKNOWN INDICATION
  5. TRIAMTERENE/HYDROCHLOROTHIAZIDE [Concomitant]
     Active Substance: HYDROCHLOROTHIAZIDE\TRIAMTERENE
  6. MIDAZOLAM. [Concomitant]
     Active Substance: MIDAZOLAM
  7. FENTANYL. [Interacting]
     Active Substance: FENTANYL
     Indication: INDUCTION OF ANAESTHESIA
     Dosage: 100 MICROGRAM
  8. PAXIL [Interacting]
     Active Substance: PAROXETINE HYDROCHLORIDE
     Indication: PRODUCT USED FOR UNKNOWN INDICATION
  9. HYDROMORPHONE [Concomitant]
     Active Substance: HYDROMORPHONE
     Dosage: 0.4 MILLIGRAM
  10. OMEPRAZOLE. [Concomitant]
     Active Substance: OMEPRAZOLE
  11. LEVOTHYROXINE. [Concomitant]
     Active Substance: LEVOTHYROXINE
  12. CLONAZEPAM. [Concomitant]
     Active Substance: CLONAZEPAM
  13. FENTANYL. [Interacting]
     Active Substance: FENTANYL
     Indication: ANALGESIC THERAPY
     Dosage: 50 MICROGRAM, TOWARDS THE END OF THE SURGERY
  14. OXYCODONE [Concomitant]
     Active Substance: OXYCODONE
  15. PROPOFOL. [Concomitant]
     Active Substance: PROPOFOL
     Indication: INDUCTION OF ANAESTHESIA
     Dosage: 200 MILLIGRAM
  16. FLUODRICORTISONE [Concomitant]
  17. GABITRIL [Concomitant]
     Active Substance: TIAGABINE HYDROCHLORIDE
  18. SUCCINYLCHOLINE [Concomitant]
     Active Substance: SUCCINYLCHOLINE
     Indication: INDUCTION OF ANAESTHESIA
     Dosage: 120 MILLIGRAM
  19. HYDROMORPHONE [Concomitant]
     Active Substance: HYDROMORPHONE
     Indication: PRODUCT USED FOR UNKNOWN INDICATION
     Dosage: 1 MILLIGRAM, TOWARDS THE END OF THE SURGERY
  20. LIPITOR [Concomitant]
     Active Substance: ATORVASTATIN CALCIUM
  21. LISINOPRIL. [Concomitant]
     Active Substance: LISINOPRIL
  22. SENNA [Concomitant]
     Active Substance: SENNA LEAF\SENNOSIDES\SENNOSIDES A AND B
  23. ONDANSETRON [Suspect]
     Active Substance: ONDANSETRON
     Indication: NAUSEA
     Dosage: 4 MILLIGRAM, TOWARDS THE END OF THE SURGERY
  24. CYMBALTA [Interacting]
     Active Substance: DULOXETINE HYDROCHLORIDE
     Indication: PRODUCT USED FOR UNKNOWN INDICATION
  25. GABAPENTIN. [Concomitant]
     Active Substance: GABAPENTIN
  26. DESFLURANE. [Concomitant]
     Active Substance: DESFLURANE
     Indication: MAINTENANCE OF ANAESTHESIA
     Dosage: UNK

REACTIONS (2)
  - Drug interaction [Unknown]
  - Serotonin syndrome [Recovering/Resolving]
